FAERS Safety Report 19584690 (Version 1)
Quarter: 2021Q3

REPORT INFORMATION
  Report Type: Spontaneous
  Country: CA (occurrence: CA)
  Receive Date: 20210720
  Receipt Date: 20210720
  Transmission Date: 20211014
  Serious: Yes (Other)
  Sender: FDA-Public Use
  Company Number: CA-TEVA-2021-CA-1935412

PATIENT
  Age: 9 Year
  Sex: Male

DRUGS (1)
  1. PREDNISONE. [Suspect]
     Active Substance: PREDNISONE
     Route: 065

REACTIONS (7)
  - Nephrotic syndrome [Unknown]
  - Focal segmental glomerulosclerosis [Unknown]
  - Exercise tolerance decreased [Unknown]
  - Nephrotic syndrome [Unknown]
  - Toxicity to various agents [Unknown]
  - Weight increased [Unknown]
  - Back pain [Unknown]

NARRATIVE: CASE EVENT DATE: 2021
